FAERS Safety Report 10100789 (Version 1)
Quarter: 2014Q2

REPORT INFORMATION
  Report Type: Spontaneous
  Country: IT (occurrence: IT)
  Receive Date: 20140423
  Receipt Date: 20140423
  Transmission Date: 20141212
  Serious: Yes (Other)
  Sender: FDA-Public Use
  Company Number: IT-MYLANLABS-2014S1008720

PATIENT
  Age: 72 Year
  Sex: Male

DRUGS (1)
  1. TICLOPIDINE HYDROCHLORIDE [Suspect]
     Indication: THROMBOSIS PROPHYLAXIS
     Dosage: 250 MG DAILY
     Route: 048
     Dates: start: 20140101, end: 20140113

REACTIONS (2)
  - Conjunctival haemorrhage [Recovering/Resolving]
  - Ocular hyperaemia [Recovering/Resolving]
